FAERS Safety Report 24836027 (Version 2)
Quarter: 2025Q4

REPORT INFORMATION
  Report Type: Spontaneous
  Country: AU (occurrence: AU)
  Receive Date: 20250113
  Receipt Date: 20251112
  Transmission Date: 20260118
  Serious: Yes (Other)
  Sender: ALKEM
  Company Number: None

PATIENT
  Age: 36 Year
  Sex: Male

DRUGS (5)
  1. QUETIAPINE FUMARATE [Suspect]
     Active Substance: QUETIAPINE FUMARATE
     Indication: Product used for unknown indication
     Dosage: UNK
     Route: 065
  2. SILDENAFIL [Suspect]
     Active Substance: SILDENAFIL
     Indication: Product used for unknown indication
     Dosage: UNK
     Route: 065
  3. CEFTRIAXONE [Suspect]
     Active Substance: CEFTRIAXONE
     Indication: Product used for unknown indication
     Dosage: UNK
     Route: 065
  4. FLUOXETINE HYDROCHLORIDE [Suspect]
     Active Substance: FLUOXETINE HYDROCHLORIDE
     Indication: Product used for unknown indication
     Dosage: UNK
     Route: 065
  5. PSEUDOEPHEDRINE [Suspect]
     Active Substance: PSEUDOEPHEDRINE
     Indication: Product used for unknown indication
     Dosage: UNK
     Route: 065

REACTIONS (4)
  - Penile abscess [Unknown]
  - Bacterial infection [Unknown]
  - Priapism [Unknown]
  - Drug ineffective [Unknown]
